FAERS Safety Report 6906025-6 (Version None)
Quarter: 2010Q3

REPORT INFORMATION
  Report Type: 
  Country: None (occurrence: None)
  Receive Date: 20100804
  Receipt Date: 20100726
  Transmission Date: 20110219
  Serious: Yes (Hospitalization, Other)
  Sender: FDA-Public Use
  Company Number: PHHO2010DE11481

PATIENT
  Sex: Female

DRUGS (8)
  1. CGS 20267 T30748+ [Suspect]
     Indication: METASTASES TO BONE
     Dosage: 2.5 MG, QD
     Route: 048
  2. CITALOPRAM [Concomitant]
  3. CONCOR [Concomitant]
  4. DYTIDE [Concomitant]
  5. CALCIUM [Concomitant]
  6. VITAMIN D [Concomitant]
  7. ANTHRACYCLINES [Concomitant]
  8. TAXANES [Concomitant]

REACTIONS (6)
  - DYSARTHRIA [None]
  - DYSGRAPHIA [None]
  - FALL [None]
  - GAIT DISTURBANCE [None]
  - LUMBAR VERTEBRAL FRACTURE [None]
  - PARESIS [None]
